FAERS Safety Report 8197887-6 (Version None)
Quarter: 2012Q1

REPORT INFORMATION
  Report Type: 
  Country: None (occurrence: None)
  Receive Date: 20120309
  Receipt Date: 20120227
  Transmission Date: 20120608
  Serious: No
  Sender: FDA-Public Use
  Company Number: US-B.I. PHARMACEUTICALS,INC./RIDGEFIELD-2012-BP-03670BP

PATIENT
  Age: 55 Year
  Sex: Female

DRUGS (1)
  1. DULCOLAX [Suspect]
     Dosage: 10 MG
     Route: 048
     Dates: start: 20090101

REACTIONS (1)
  - CONSTIPATION [None]
